FAERS Safety Report 8000688-2 (Version None)
Quarter: 2011Q4

REPORT INFORMATION
  Report Type: 
  Country: None (occurrence: None)
  Receive Date: 20111216
  Receipt Date: 20111212
  Transmission Date: 20120403
  Serious: Yes (Hospitalization, Other)
  Sender: FDA-Public Use
  Company Number: 2011SP000219

PATIENT
  Age: 46 Year
  Sex: Female
  Weight: 146.5118 kg

DRUGS (6)
  1. METOPROLOL TARTRATE [Concomitant]
  2. METFORMIN HCL [Concomitant]
  3. GLIPIZIDE [Concomitant]
  4. LISINOPRIL [Concomitant]
  5. HYDROCHLOROTHIAZIDE [Concomitant]
  6. NUVARING [Suspect]
     Indication: CONTRACEPTION
     Dosage: ;VAG
     Route: 067
     Dates: start: 20030801, end: 20090101

REACTIONS (20)
  - OTITIS MEDIA [None]
  - ENTEROCOCCUS TEST POSITIVE [None]
  - BLOOD PRESSURE INADEQUATELY CONTROLLED [None]
  - NAUSEA [None]
  - LEFT VENTRICULAR HYPERTROPHY [None]
  - TREATMENT NONCOMPLIANCE [None]
  - INTRACRANIAL ANEURYSM [None]
  - ANAEMIA [None]
  - HYPERTENSION [None]
  - HYPERTENSIVE CRISIS [None]
  - PYREXIA [None]
  - DIZZINESS [None]
  - VERTIGO [None]
  - CAROTID ARTERY ANEURYSM [None]
  - CULTURE POSITIVE [None]
  - CEREBRAL INFARCTION [None]
  - BLOOD TRIGLYCERIDES INCREASED [None]
  - DIABETES MELLITUS INADEQUATE CONTROL [None]
  - SWELLING FACE [None]
  - PNEUMOCEPHALUS [None]
